FAERS Safety Report 21473426 (Version 1)
Quarter: 2022Q4

REPORT INFORMATION
  Report Type: Spontaneous
  Country: ID (occurrence: ID)
  Receive Date: 20221018
  Receipt Date: 20221018
  Transmission Date: 20230113
  Serious: Yes (Life-Threatening, Hospitalization, Other)
  Sender: FDA-Public Use
  Company Number: ID-MLMSERVICE-20221005-3837238-1

PATIENT
  Age: 18 Year
  Sex: Female

DRUGS (4)
  1. IBUPROFEN [Suspect]
     Active Substance: IBUPROFEN
     Indication: Gastritis erosive
     Dosage: 400 MG, 12 H (HOURS)
     Route: 048
  2. ACETAMINOPHEN [Suspect]
     Active Substance: ACETAMINOPHEN
     Indication: Pyrexia
     Dosage: 3 ? 500 MG
     Route: 048
  3. ACETAMINOPHEN [Suspect]
     Active Substance: ACETAMINOPHEN
     Dosage: UNK
  4. SULFASALAZINE [Suspect]
     Active Substance: SULFASALAZINE
     Indication: Gastritis erosive
     Dosage: 1000 MG, 12 H (HOURS)
     Route: 065

REACTIONS (3)
  - Sepsis [Recovering/Resolving]
  - Infection [Recovering/Resolving]
  - Stevens-Johnson syndrome [Recovering/Resolving]
